FAERS Safety Report 16125877 (Version 3)
Quarter: 2019Q2

REPORT INFORMATION
  Report Type: Spontaneous
  Country: DE (occurrence: DE)
  Receive Date: 20190328
  Receipt Date: 20190404
  Transmission Date: 20190711
  Serious: Yes (Death, Other)
  Sender: FDA-Public Use
  Company Number: DE-AUROBINDO-AUR-APL-2019-016677

PATIENT

DRUGS (6)
  1. CASPOFUNGIN [Suspect]
     Active Substance: CASPOFUNGIN
     Indication: CANDIDA INFECTION
     Dosage: 70 MILLIGRAM,ON THE INITIAL DAY
     Route: 042
     Dates: start: 20160213, end: 20160213
  2. CASPOFUNGIN [Suspect]
     Active Substance: CASPOFUNGIN
     Indication: ANTIFUNGAL TREATMENT
     Dosage: 50 MILLIGRAM
     Route: 065
     Dates: start: 20160214, end: 20160220
  3. VORICONAZOLE. [Suspect]
     Active Substance: VORICONAZOLE
     Indication: CANDIDA INFECTION
  4. ANIDULAFUNGIN [Suspect]
     Active Substance: ANIDULAFUNGIN
     Indication: ANTIFUNGAL TREATMENT
     Dosage: 100 MILLIGRAM
     Route: 065
     Dates: start: 20160220, end: 20160228
  5. VORICONAZOLE. [Suspect]
     Active Substance: VORICONAZOLE
     Indication: ANTIFUNGAL PROPHYLAXIS
     Dosage: UNK
     Route: 065
     Dates: start: 20151208, end: 20160213
  6. ANIDULAFUNGIN [Suspect]
     Active Substance: ANIDULAFUNGIN
     Indication: CANDIDA INFECTION
     Dosage: UNK
     Route: 065
     Dates: start: 20160115, end: 20160121

REACTIONS (3)
  - Acquired gene mutation [Unknown]
  - Multiple-drug resistance [Fatal]
  - Drug ineffective [Unknown]
